FAERS Safety Report 6523683-9 (Version None)
Quarter: 2009Q4

REPORT INFORMATION
  Report Type: 
  Country: None (occurrence: None)
  Receive Date: 20091231
  Receipt Date: 20091222
  Transmission Date: 20100525
  Serious: Yes (Other)
  Sender: FDA-Public Use
  Company Number: RS-NOVOPROD-302441

PATIENT
  Sex: Female
  Weight: 4.75 kg

DRUGS (2)
  1. NOVORAPID [Suspect]
     Indication: TYPE 1 DIABETES MELLITUS
     Dosage: 12 IU, UNK
     Route: 064
     Dates: end: 20090514
  2. LEVEMIR [Suspect]
     Indication: TYPE 1 DIABETES MELLITUS
     Dosage: UNK
     Route: 064
     Dates: end: 20090514

REACTIONS (2)
  - CEREBRAL HAEMORRHAGE NEONATAL [None]
  - PARESIS [None]
